FAERS Safety Report 24421739 (Version 1)
Quarter: 2024Q4

REPORT INFORMATION
  Report Type: Spontaneous
  Country: US (occurrence: US)
  Receive Date: 20241010
  Receipt Date: 20241010
  Transmission Date: 20250114
  Serious: No
  Sender: TAKEDA
  Company Number: US-TAKEDA-2024TUS099552

PATIENT

DRUGS (1)
  1. DEXILANT [Suspect]
     Active Substance: DEXLANSOPRAZOLE
     Indication: Gastrointestinal disorder
     Dosage: 60 MILLIGRAM
     Route: 065

REACTIONS (2)
  - No adverse event [Unknown]
  - Product use in unapproved indication [Unknown]
